FAERS Safety Report 5313867-X (Version None)
Quarter: 2007Q2

REPORT INFORMATION
  Report Type: 
  Country: None (occurrence: None)
  Receive Date: 20070501
  Receipt Date: 20070427
  Transmission Date: 20071010
  Serious: Yes (Hospitalization)
  Sender: FDA-Public Use
  Company Number: HQWYE893427APR07

PATIENT
  Age: 82 Year
  Sex: Female

DRUGS (6)
  1. CORDARONE [Suspect]
     Route: 048
  2. COZAAR [Suspect]
     Route: 048
  3. HEMIGOXINE NATIVELLE [Suspect]
     Route: 048
  4. ALDACTONE [Suspect]
     Route: 048
  5. LASIX [Suspect]
     Route: 048
  6. ALLOPURINOL [Suspect]
     Route: 048

REACTIONS (2)
  - FALL [None]
  - MALAISE [None]
